FAERS Safety Report 9187539 (Version 1)
Quarter: 2013Q1

REPORT INFORMATION
  Report Type: Spontaneous
  Country: FR (occurrence: FR)
  Receive Date: 20130325
  Receipt Date: 20130325
  Transmission Date: 20140127
  Serious: Yes (Life-Threatening, Hospitalization, Other)
  Sender: FDA-Public Use
  Company Number: FR-PFIZER INC-2013094730

PATIENT
  Age: 70 Year
  Sex: Male

DRUGS (10)
  1. TRIATEC [Suspect]
     Dosage: 5 MG, DAILY
     Route: 048
     Dates: start: 20130101
  2. PROFENID [Suspect]
     Dosage: 100 MG, AS NEEDED
     Route: 048
     Dates: start: 20130117, end: 20130121
  3. LASILIX [Suspect]
     Dosage: 40 MG, DAILY
     Route: 048
     Dates: start: 20130101, end: 20130121
  4. XARELTO [Suspect]
     Dosage: 20 MG, DAILY
     Route: 048
     Dates: start: 201211, end: 20130121
  5. CORDARONE [Concomitant]
     Dosage: UNK
  6. MOPRAL [Concomitant]
     Dosage: UNK
     Dates: end: 20130121
  7. DAFALGAN CODEINE [Concomitant]
     Dosage: UNK
     Dates: end: 20130121
  8. ZYLORIC [Concomitant]
     Dosage: UNK
     Dates: end: 20130121
  9. EUPRESSYL [Concomitant]
     Dosage: UNK
     Dates: end: 20130121
  10. CARDENSIEL [Concomitant]
     Dosage: UNK

REACTIONS (4)
  - Pancreatitis acute [Not Recovered/Not Resolved]
  - Renal failure acute [Unknown]
  - Hepatocellular injury [Unknown]
  - Hypertension [Unknown]
